FAERS Safety Report 10132264 (Version 1)
Quarter: 2014Q2

REPORT INFORMATION
  Report Type: Spontaneous
  Country: GB (occurrence: GB)
  Receive Date: 20140428
  Receipt Date: 20140428
  Transmission Date: 20141212
  Serious: Yes (Life-Threatening, Hospitalization)
  Sender: FDA-Public Use
  Company Number: GB-TEVA-477421ISR

PATIENT
  Age: 43 Year
  Sex: Female

DRUGS (4)
  1. CITALOPRAM [Suspect]
     Dosage: 20 MG X 21 TABLETS
     Route: 048
     Dates: start: 20130923
  2. DIAZEPAM [Suspect]
     Dosage: 5 MG X28 TABLETS
     Route: 048
     Dates: start: 20130923
  3. PROCHLORPERAZINE [Suspect]
     Dosage: 5 MG X 20 TABLETS
     Route: 048
     Dates: start: 20130923
  4. AIN457 [Suspect]
     Indication: PSORIASIS
     Dosage: DOSE BLINDED
     Route: 042
     Dates: start: 20120419

REACTIONS (2)
  - Intentional overdose [Recovered/Resolved]
  - Suicide attempt [Unknown]
